FAERS Safety Report 22352900 (Version 3)
Quarter: 2023Q2

REPORT INFORMATION
  Report Type: Report from Study
  Country: CA (occurrence: CA)
  Receive Date: 20230523
  Receipt Date: 20230615
  Transmission Date: 20230721
  Serious: Yes (Other)
  Sender: FDA-Public Use
  Company Number: CA-JNJFOC-20230544077

PATIENT
  Sex: Female

DRUGS (1)
  1. REMICADE [Suspect]
     Active Substance: INFLIXIMAB
     Indication: Crohn^s disease
     Dosage: LAST DOSE ADMINISTERED ON 12-APR-2023. PATIENT RECEIVED REMICADE INFUSION ON 13-JUN-2023.
     Route: 042

REACTIONS (1)
  - Clostridium difficile infection [Recovering/Resolving]
